FAERS Safety Report 17885198 (Version 1)
Quarter: 2020Q2

REPORT INFORMATION
  Report Type: Spontaneous
  Country: JP (occurrence: JP)
  Receive Date: 20200611
  Receipt Date: 20200611
  Transmission Date: 20200714
  Serious: Yes (Other)
  Sender: FDA-Public Use
  Company Number: JP-PFIZER INC-2020223009

PATIENT
  Age: 73 Year
  Sex: Female

DRUGS (3)
  1. GABAPEN [Suspect]
     Active Substance: GABAPENTIN
     Dosage: UNK
     Route: 048
  2. MORPHINE [Suspect]
     Active Substance: MORPHINE
     Dosage: UNK
     Route: 048
  3. LYRICA [Suspect]
     Active Substance: PREGABALIN
     Dosage: 150 MG, 2X/DAY
     Route: 048

REACTIONS (10)
  - Peripheral coldness [Unknown]
  - Duodenal neoplasm [Unknown]
  - Headache [Unknown]
  - Pancreatic carcinoma stage IV [Unknown]
  - Hypoaesthesia [Unknown]
  - Alopecia [Unknown]
  - Weight decreased [Unknown]
  - Hepatic neoplasm [Unknown]
  - Pain [Unknown]
  - Liver function test increased [Unknown]

NARRATIVE: CASE EVENT DATE: 201912
